FAERS Safety Report 4556880-2 (Version None)
Quarter: 2005Q1

REPORT INFORMATION
  Report Type: 
  Country: None (occurrence: None)
  Receive Date: 20050118
  Receipt Date: 20050106
  Transmission Date: 20050727
  Serious: Yes (Other)
  Sender: FDA-Public Use
  Company Number: 2005007786

PATIENT
  Sex: Female

DRUGS (1)
  1. EPIRUBICIN [Suspect]
     Indication: ILL-DEFINED DISORDER
     Dosage: 150 MG

REACTIONS (2)
  - BIPOLAR DISORDER [None]
  - MANIA [None]
